FAERS Safety Report 16353110 (Version 1)
Quarter: 2019Q3

REPORT INFORMATION
  Report Type: Spontaneous
  Country: US (occurrence: US)
  Receive Date: 20190523
  Receipt Date: 20190523
  Transmission Date: 20191004
  Serious: Yes (Other)
  Sender: FDA-Public Use
  Company Number: None

PATIENT
  Age: 54 Year
  Sex: Female
  Weight: 82.8 kg

DRUGS (25)
  1. HYDROCODONE BITARTRATE AND ACETAMINOPHEN [Suspect]
     Active Substance: ACETAMINOPHEN\HYDROCODONE BITARTRATE
     Indication: BACK PAIN
     Dosage: ?          QUANTITY:90 CAPSULE(S);?
     Route: 048
     Dates: start: 20190510
  2. LOSARTAN-HYDROCHLOROTHIAZIDE [Concomitant]
     Active Substance: HYDROCHLOROTHIAZIDE\LOSARTAN
  3. AMITRIPTYLINE HCL [Concomitant]
     Active Substance: AMITRIPTYLINE
  4. METFORMIN ER [Concomitant]
     Active Substance: METFORMIN HYDROCHLORIDE
  5. ONDANSETRON [Concomitant]
     Active Substance: ONDANSETRON
  6. FREESTYLE LIBRE 14 DAY SENSOR [Concomitant]
  7. SPINAL STIMULATOR [Concomitant]
  8. CONJUGATED ESTROGENS VAGINAL CREAM [Concomitant]
  9. LEVOCETIRIZINE [Concomitant]
     Active Substance: LEVOCETIRIZINE
  10. DICLOFENAC SODIUM. [Concomitant]
     Active Substance: DICLOFENAC SODIUM
  11. TRAZODONE [Concomitant]
     Active Substance: TRAZODONE HYDROCHLORIDE
  12. BACLOFEN. [Concomitant]
     Active Substance: BACLOFEN
  13. VALACYCLOVIR [Concomitant]
     Active Substance: VALACYCLOVIR HYDROCHLORIDE
  14. AZELASTINE. [Concomitant]
     Active Substance: AZELASTINE HYDROCHLORIDE
  15. PILOCARPINE. [Concomitant]
     Active Substance: PILOCARPINE
  16. NOVOLOG [Concomitant]
     Active Substance: INSULIN ASPART
  17. PROMETHAZINE [Concomitant]
     Active Substance: PROMETHAZINE HYDROCHLORIDE
  18. BIOTICS HYDRO-ZYME [Concomitant]
  19. GABAPENTIN. [Concomitant]
     Active Substance: GABAPENTIN
  20. NALTREXONE [Concomitant]
     Active Substance: NALTREXONE
  21. NALOXONE [Concomitant]
     Active Substance: NALOXONE
  22. BIOTICS LIVOTRIT [Concomitant]
  23. BIOTICS KAPP ARREST [Concomitant]
  24. BUPROPION. [Concomitant]
     Active Substance: BUPROPION
  25. SUVOREXANT. [Concomitant]
     Active Substance: SUVOREXANT

REACTIONS (4)
  - Somnolence [None]
  - Drug level increased [None]
  - Nausea [None]
  - Drug ineffective [None]

NARRATIVE: CASE EVENT DATE: 20190518
